FAERS Safety Report 13887783 (Version 1)
Quarter: 2017Q3

REPORT INFORMATION
  Report Type: Spontaneous
  Country: US (occurrence: US)
  Receive Date: 20170821
  Receipt Date: 20170821
  Transmission Date: 20171127
  Serious: No
  Sender: FDA-Public Use
  Company Number: GXBR2017US001751

PATIENT
  Sex: Female
  Weight: 50.35 kg

DRUGS (6)
  1. CHOLESTYRAMINE FOR ORAL SUSPENSION USP [Suspect]
     Active Substance: CHOLESTYRAMINE
     Dosage: 9 G, QD
     Route: 048
  2. LEXAPRO [Concomitant]
     Active Substance: ESCITALOPRAM OXALATE
     Indication: PRODUCT USED FOR UNKNOWN INDICATION
     Dosage: 10 MG, UNK
     Route: 048
  3. CHOLESTYRAMINE FOR ORAL SUSPENSION USP [Suspect]
     Active Substance: CHOLESTYRAMINE
     Dosage: 9 G, QD
     Route: 065
  4. CHOLESTYRAMINE FOR ORAL SUSPENSION USP [Suspect]
     Active Substance: CHOLESTYRAMINE
     Indication: GASTROOESOPHAGEAL REFLUX DISEASE
     Dosage: 9 G, QD
     Route: 048
     Dates: start: 20160815, end: 20170228
  5. PRILOSEC [Concomitant]
     Active Substance: OMEPRAZOLE MAGNESIUM
     Indication: PRODUCT USED FOR UNKNOWN INDICATION
     Dosage: 300 MG, UNK
     Route: 048
  6. ZOLEDRONIC ACID [Concomitant]
     Active Substance: ZOLEDRONIC ACID
     Indication: BONE DISORDER
     Route: 065

REACTIONS (9)
  - Abdominal pain [Unknown]
  - Nausea [Unknown]
  - Drug ineffective [Unknown]
  - Gastric dilatation [Unknown]
  - Vomiting [Unknown]
  - Headache [Unknown]
  - Lactose intolerance [Not Recovered/Not Resolved]
  - Chest pain [Unknown]
  - Gastrointestinal motility disorder [Unknown]
